FAERS Safety Report 8818430 (Version 1)
Quarter: 2012Q4

REPORT INFORMATION
  Report Type: 
  Country: ES (occurrence: ES)
  Receive Date: 20121001
  Receipt Date: 20121001
  Transmission Date: 20130627
  Serious: Yes (Hospitalization)
  Sender: FDA-Public Use
  Company Number: ES-ELI_LILLY_AND_COMPANY-ES201209004153

PATIENT
  Sex: Female

DRUGS (1)
  1. FORSTEO [Suspect]
     Dosage: UNK
     Dates: start: 20120906

REACTIONS (7)
  - Fall [Unknown]
  - Tremor [Unknown]
  - Restlessness [Unknown]
  - Condition aggravated [Unknown]
  - Abnormal behaviour [Unknown]
  - Back pain [Unknown]
  - Hypercalcaemia [Unknown]
